FAERS Safety Report 5808699-X (Version None)
Quarter: 2008Q3

REPORT INFORMATION
  Report Type: 
  Country: None (occurrence: None)
  Receive Date: 20080714
  Receipt Date: 20080708
  Transmission Date: 20090109
  Serious: Yes (Death)
  Sender: FDA-Public Use
  Company Number: US-TEVA-174013USA

PATIENT
  Age: 56 Year
  Sex: Male

DRUGS (2)
  1. GABAPENTIN [Suspect]
     Indication: CONVULSION
     Route: 048
     Dates: start: 20060401
  2. GABAPENTIN [Suspect]
     Indication: CONVULSION
     Dates: start: 20060401

REACTIONS (1)
  - COMPLETED SUICIDE [None]
